FAERS Safety Report 9311761 (Version 1)
Quarter: 2013Q2

REPORT INFORMATION
  Report Type: Spontaneous
  Country: FR (occurrence: FR)
  Receive Date: 20130528
  Receipt Date: 20130528
  Transmission Date: 20140414
  Serious: Yes (Life-Threatening, Hospitalization)
  Sender: FDA-Public Use
  Company Number: FR-UCBSA-086348

PATIENT
  Age: 56 Year
  Sex: Male

DRUGS (3)
  1. VIMPAT [Suspect]
     Indication: EPILEPSY
     Route: 048
     Dates: start: 2012
  2. BISOPROLOL FUMARATE [Suspect]
     Indication: HYPERTENSION
     Dosage: DAILY DOSE: 10 MG
     Route: 048
     Dates: start: 2011
  3. GARDENAL [Concomitant]
     Dosage: UNKNOWN DOSE

REACTIONS (2)
  - Atrioventricular block complete [Recovered/Resolved with Sequelae]
  - Syncope [Recovered/Resolved with Sequelae]
